FAERS Safety Report 9982885 (Version 1)
Quarter: 2014Q1

REPORT INFORMATION
  Report Type: Spontaneous
  Country: US (occurrence: US)
  Receive Date: 20140307
  Receipt Date: 20140307
  Transmission Date: 20141002
  Serious: No
  Sender: FDA-Public Use
  Company Number: US-ABBVIE-13P-163-1177094-00

PATIENT
  Age: 52 Year
  Sex: Female
  Weight: 104.42 kg

DRUGS (11)
  1. HUMIRA [Suspect]
     Indication: RHEUMATOID ARTHRITIS
     Dates: start: 201309, end: 201311
  2. SEROQUEL [Concomitant]
     Indication: BIPOLAR DISORDER
  3. TOPOMAX [Concomitant]
     Indication: BIPOLAR DISORDER
  4. LAMICTAL [Concomitant]
     Indication: BIPOLAR DISORDER
  5. WELLBUTRIN [Concomitant]
     Indication: BIPOLAR DISORDER
  6. METHOTREXATE [Concomitant]
     Indication: RHEUMATOID ARTHRITIS
  7. LEUCOVORIN [Concomitant]
     Indication: VITAMIN SUPPLEMENTATION
  8. VITAMIN B6 [Concomitant]
     Indication: VITAMIN SUPPLEMENTATION
  9. ISONIAZID [Concomitant]
     Indication: EXPOSURE TO COMMUNICABLE DISEASE
     Dates: start: 201307
  10. NAPROSYN [Concomitant]
     Indication: PAIN
  11. VICODIN [Concomitant]
     Indication: PAIN

REACTIONS (2)
  - Arthralgia [Recovered/Resolved]
  - Drug ineffective [Not Recovered/Not Resolved]
